FAERS Safety Report 4536200-X (Version None)
Quarter: 2004Q4

REPORT INFORMATION
  Report Type: 
  Country: None (occurrence: None)
  Receive Date: 20041223
  Receipt Date: 20041129
  Transmission Date: 20050328
  Serious: Yes (Hospitalization)
  Sender: FDA-Public Use
  Company Number: BE-GLAXOSMITHKLINE-B0358862A

PATIENT
  Age: 46 Year
  Sex: Female
  Weight: 48 kg

DRUGS (1)
  1. AUGMENTIN '125' [Suspect]
     Indication: ABDOMINAL INFECTION
     Route: 065

REACTIONS (5)
  - HEPATIC ENZYME INCREASED [None]
  - INFECTION [None]
  - JUVENILE ARTHRITIS [None]
  - NEUTROPHILIA [None]
  - PYREXIA [None]
